FAERS Safety Report 10884692 (Version 6)
Quarter: 2015Q4

REPORT INFORMATION
  Report Type: Report from Study
  Country: US (occurrence: US)
  Receive Date: 20150304
  Receipt Date: 20151120
  Transmission Date: 20160304
  Serious: Yes (Other)
  Sender: FDA-Public Use
  Company Number: US-SA-2014SA172224

PATIENT
  Age: 78 Year
  Sex: Male

DRUGS (11)
  1. LOVASTATIN. [Concomitant]
     Active Substance: LOVASTATIN
     Dosage: STRENGTH: 20 MG
     Route: 048
  2. FLOMAX [Concomitant]
     Active Substance: TAMSULOSIN HYDROCHLORIDE
     Dosage: STRENGTH:0.4 MG?ONE CAPSULE NIGHTLY
  3. NORVASC [Concomitant]
     Active Substance: AMLODIPINE BESYLATE
     Dosage: STRENGTH: 5 MG
     Route: 048
  4. PROSCAR [Concomitant]
     Active Substance: FINASTERIDE
     Route: 048
  5. FOLIC ACID. [Concomitant]
     Active Substance: FOLIC ACID
  6. AUBAGIO [Suspect]
     Active Substance: TERIFLUNOMIDE
     Indication: MULTIPLE SCLEROSIS
     Route: 048
     Dates: start: 20141204
  7. ATENOLOL. [Concomitant]
     Active Substance: ATENOLOL
     Dosage: STRENGTH: 50 MG
     Route: 048
  8. PLAVIX [Concomitant]
     Active Substance: CLOPIDOGREL BISULFATE
     Dosage: STRENGTH: 75 MG
     Route: 048
  9. LISINOPRIL. [Concomitant]
     Active Substance: LISINOPRIL
  10. AMITRIPTYLINE HYDROCHLORIDE. [Concomitant]
     Active Substance: AMITRIPTYLINE HYDROCHLORIDE
     Dosage: 10 MG TABLET TAKE 1/4 TABLET AT BEDTIME
  11. VITAMIN B12 [Concomitant]
     Active Substance: CYANOCOBALAMIN

REACTIONS (13)
  - Headache [Recovered/Resolved]
  - Drug ineffective [Unknown]
  - Surgery [Unknown]
  - Inappropriate schedule of drug administration [Unknown]
  - Somnolence [Recovering/Resolving]
  - Glycosylated haemoglobin increased [Unknown]
  - Fatigue [Unknown]
  - Vertigo positional [Unknown]
  - Duodenal ulcer [Recovering/Resolving]
  - Dizziness [Recovered/Resolved]
  - Pain [Recovering/Resolving]
  - Syncope [Unknown]
  - Blood glucose increased [Recovering/Resolving]

NARRATIVE: CASE EVENT DATE: 20150115
